FAERS Safety Report 18523351 (Version 7)
Quarter: 2021Q4

REPORT INFORMATION
  Report Type: Report from Study
  Country: GB (occurrence: GB)
  Receive Date: 20201119
  Receipt Date: 20211117
  Transmission Date: 20220303
  Serious: Yes (Hospitalization, Other)
  Sender: FDA-Public Use
  Company Number: NVSC2020GB228659

PATIENT
  Sex: Female

DRUGS (4)
  1. SANDOSTATIN LAR DEPOT [Suspect]
     Active Substance: OCTREOTIDE ACETATE
     Indication: Neuroendocrine tumour
     Dosage: 30 MG, Q4W
     Route: 030
     Dates: start: 20200720
  2. SANDOSTATIN LAR DEPOT [Suspect]
     Active Substance: OCTREOTIDE ACETATE
  3. SANDOSTATIN LAR DEPOT [Suspect]
     Active Substance: OCTREOTIDE ACETATE
  4. NUTRIZYM 22 [Concomitant]
     Indication: Product used for unknown indication
     Route: 065

REACTIONS (25)
  - Cholelithiasis [Unknown]
  - Infection [Unknown]
  - Body temperature increased [Unknown]
  - Blood potassium decreased [Recovered/Resolved]
  - Inflammatory bowel disease [Unknown]
  - Hepatic cyst [Unknown]
  - Malaise [Unknown]
  - Vomiting [Unknown]
  - Deep vein thrombosis [Unknown]
  - Diverticulitis [Unknown]
  - Cardiac disorder [Unknown]
  - Flushing [Unknown]
  - Anaemia [Unknown]
  - Blood magnesium decreased [Unknown]
  - Arthralgia [Unknown]
  - Constipation [Unknown]
  - Fatigue [Unknown]
  - Abdominal pain [Unknown]
  - Abdominal pain lower [Unknown]
  - Headache [Unknown]
  - Abdominal distension [Unknown]
  - Flatulence [Unknown]
  - Dyspnoea [Unknown]
  - Diarrhoea [Unknown]
  - Dyspepsia [Recovering/Resolving]
